FAERS Safety Report 17118288 (Version 4)
Quarter: 2020Q2

REPORT INFORMATION
  Report Type: Report from Study
  Country: US (occurrence: US)
  Receive Date: 20191205
  Receipt Date: 20200603
  Transmission Date: 20200713
  Serious: No
  Sender: FDA-Public Use
  Company Number: NVSC2019US059678

PATIENT
  Age: 82 Year
  Sex: Female

DRUGS (3)
  1. BEOVU [Suspect]
     Active Substance: BROLUCIZUMAB-DBLL
     Dosage: UNK
     Route: 047
     Dates: start: 20191120
  2. BEOVU [Suspect]
     Active Substance: BROLUCIZUMAB-DBLL
     Dosage: UNK
     Route: 047
     Dates: start: 20191119
  3. BEOVU [Suspect]
     Active Substance: BROLUCIZUMAB-DBLL
     Dosage: UNK OT (VIAL)
     Route: 047

REACTIONS (5)
  - Product dose omission [Unknown]
  - Cystitis [Unknown]
  - Vision blurred [Not Recovered/Not Resolved]
  - Pyrexia [Unknown]
  - Eye infection [Unknown]

NARRATIVE: CASE EVENT DATE: 20191119
